FAERS Safety Report 8806032 (Version 1)
Quarter: 2012Q4

REPORT INFORMATION
  Report Type: 
  Country: US (occurrence: US)
  Receive Date: 20120925
  Receipt Date: 20120925
  Transmission Date: 20130627
  Serious: Yes (Death)
  Sender: FDA-Public Use
  Company Number: US-PFIZER INC-2012233497

PATIENT
  Age: 69 Year
  Sex: Male

DRUGS (1)
  1. SUTENT [Suspect]
     Indication: BLADDER CANCER
     Dosage: 50 mg, UNK
     Dates: start: 20120723

REACTIONS (3)
  - Off label use [Fatal]
  - Disease progression [Fatal]
  - Bladder cancer [Fatal]
